FAERS Safety Report 23075838 (Version 1)
Quarter: 2023Q4

REPORT INFORMATION
  Report Type: Spontaneous
  Country: IN (occurrence: IN)
  Receive Date: 20231017
  Receipt Date: 20231017
  Transmission Date: 20240110
  Serious: Yes (Other)
  Sender: FDA-Public Use
  Company Number: IN-SUN PHARMACEUTICAL INDUSTRIES LTD-2023R1-413009

PATIENT
  Age: 30 Year
  Sex: Male
  Weight: 69 kg

DRUGS (1)
  1. ISOTRETINOIN [Suspect]
     Active Substance: ISOTRETINOIN
     Indication: Acne
     Dosage: 45 MILLIGRAM, DAILY
     Route: 048

REACTIONS (2)
  - Gouty arthritis [Unknown]
  - Toxicity to various agents [Unknown]
